FAERS Safety Report 4853067-0 (Version None)
Quarter: 2005Q4

REPORT INFORMATION
  Report Type: 
  Country: None (occurrence: None)
  Receive Date: 20051212
  Receipt Date: 20051129
  Transmission Date: 20060501
  Serious: Yes (Hospitalization)
  Sender: FDA-Public Use
  Company Number: B0402194A

PATIENT
  Age: 48 Year
  Sex: Male

DRUGS (7)
  1. CHLORPROMAZINE HCL [Suspect]
     Dosage: 650 MG / AT NIGHT /
  2. BENZHEXOL (FORMULATION UNKNOWN) (BENZHEXOL) [Suspect]
     Dosage: 2 MG / TWICE PER DAY /
  3. ZUCLOPENTHIXOL DECANOATE INJECTION (ZUCLOPENTHIXOL DECANOATE) [Suspect]
     Dosage: 600 MG / MONTHLY / INTRAMUSCULAR
     Route: 030
  4. GLIBENCLAMIDE [Concomitant]
  5. METFORMIN HYDROCHLORIDE [Concomitant]
  6. DIAZEPAM [Concomitant]
  7. VALPROATE SODIUM [Concomitant]

REACTIONS (14)
  - ACTIVATED PARTIAL THROMBOPLASTIN TIME PROLONGED [None]
  - BLOOD GLUCOSE INCREASED [None]
  - BLOOD PRESSURE DECREASED [None]
  - COMA [None]
  - DYSKINESIA [None]
  - HEART RATE INCREASED [None]
  - HEAT EXHAUSTION [None]
  - HEAT STROKE [None]
  - METABOLIC ACIDOSIS [None]
  - PROTHROMBIN TIME PROLONGED [None]
  - RENAL IMPAIRMENT [None]
  - RHABDOMYOLYSIS [None]
  - THROMBOCYTOPENIA [None]
  - VENTRICULAR TACHYCARDIA [None]
